FAERS Safety Report 8193059-X (Version None)
Quarter: 2012Q1

REPORT INFORMATION
  Report Type: 
  Country: None (occurrence: None)
  Receive Date: 20120221
  Receipt Date: 20111206
  Transmission Date: 20120608
  Serious: Yes (Hospitalization)
  Sender: FDA-Public Use
  Company Number: 11-001311

PATIENT
  Age: 33 Year
  Sex: Female
  Weight: 59 kg

DRUGS (1)
  1. LO LOESTRIN FE [Suspect]
     Indication: CONTRACEPTION
     Dosage: 10/1000UG, QD, ORAL
     Route: 048
     Dates: start: 20111001, end: 20111125

REACTIONS (2)
  - PULMONARY EMBOLISM [None]
  - CHEST PAIN [None]
